FAERS Safety Report 11622335 (Version 1)
Quarter: 2015Q4

REPORT INFORMATION
  Report Type: Spontaneous
  Country: US (occurrence: None)
  Receive Date: 20151009
  Receipt Date: 20151009
  Transmission Date: 20160304
  Serious: No
  Sender: FDA-Public Use
  Company Number: None

PATIENT
  Age: 84 Year
  Sex: Female
  Weight: 59.88 kg

DRUGS (20)
  1. COUMADIN [Concomitant]
     Active Substance: WARFARIN SODIUM
  2. LIVALO [Concomitant]
     Active Substance: PITAVASTATIN CALCIUM
  3. VIT. D3 [Concomitant]
  4. TIMOLOL. [Concomitant]
     Active Substance: TIMOLOL
  5. BIOTIN [Concomitant]
     Active Substance: BIOTIN
  6. LUTEIN [Concomitant]
     Active Substance: LUTEIN
  7. LATANOPROST 0.005% [Suspect]
     Active Substance: LATANOPROST
     Indication: GLAUCOMA
     Route: 047
     Dates: start: 20150825, end: 20150905
  8. POTASSIUM [Concomitant]
     Active Substance: POTASSIUM
  9. SELENIUM [Concomitant]
     Active Substance: SELENIUM
  10. TIKOSYN [Concomitant]
     Active Substance: DOFETILIDE
  11. COQ10 [Concomitant]
     Active Substance: UBIDECARENONE
  12. C-1000 [Concomitant]
  13. FOLIC ACID. [Concomitant]
     Active Substance: FOLIC ACID
  14. CALCIUM [Concomitant]
     Active Substance: CALCIUM
  15. MAGNESIUM [Concomitant]
     Active Substance: MAGNESIUM
  16. B-100 COMPLEX [Concomitant]
     Active Substance: DEXPANTHENOL\NIACINAMIDE\PYRIDOXINE HYDROCHLORIDE\RIBOFLAVIN 5^-PHOSPHATE SODIUM\THIAMINE HYDROCHLORIDE
  17. SYNTHROID [Concomitant]
     Active Substance: LEVOTHYROXINE SODIUM
  18. TOPROL XL [Concomitant]
     Active Substance: METOPROLOL SUCCINATE
  19. ZETIA [Concomitant]
     Active Substance: EZETIMIBE
  20. GLUCOSAMIN [Concomitant]

REACTIONS (9)
  - Chills [None]
  - Feeling cold [None]
  - Arthralgia [None]
  - Impaired driving ability [None]
  - Pain in extremity [None]
  - Eye pruritus [None]
  - Eye irritation [None]
  - Eye pain [None]
  - Movement disorder [None]

NARRATIVE: CASE EVENT DATE: 20150902
